FAERS Safety Report 7361704-4 (Version None)
Quarter: 2011Q1

REPORT INFORMATION
  Report Type: 
  Country: None (occurrence: None)
  Receive Date: 20110318
  Receipt Date: 20110311
  Transmission Date: 20110831
  Serious: Yes (Other)
  Sender: FDA-Public Use
  Company Number: US-PFIZER INC-2006069819

PATIENT
  Sex: Male

DRUGS (6)
  1. NEURONTIN [Suspect]
     Dosage: 1200 MG, UNK
     Dates: start: 20040323
  2. EFFEXOR [Concomitant]
     Dosage: UNK
     Dates: start: 20040323
  3. DEPAKOTE [Concomitant]
     Dosage: UNK
     Dates: start: 20040323
  4. WELLBUTRIN [Concomitant]
     Dosage: UNK
     Dates: start: 20040323
  5. NEURONTIN [Suspect]
     Dosage: UNK
     Dates: start: 20010928
  6. SEROQUEL [Concomitant]
     Dosage: UNK
     Dates: start: 20040323

REACTIONS (2)
  - INTENTIONAL OVERDOSE [None]
  - SUICIDE ATTEMPT [None]
